FAERS Safety Report 6912445-6 (Version None)
Quarter: 2010Q3

REPORT INFORMATION
  Report Type: 
  Country: None (occurrence: None)
  Receive Date: 20100806
  Receipt Date: 20080528
  Transmission Date: 20110219
  Serious: No
  Sender: FDA-Public Use
  Company Number: US-PFIZER INC-2008046765

PATIENT
  Sex: Female

DRUGS (1)
  1. GEMFIBROZIL [Suspect]
     Dates: start: 20010101, end: 20010101

REACTIONS (2)
  - INFLUENZA LIKE ILLNESS [None]
  - MALAISE [None]
